FAERS Safety Report 8269189-0 (Version None)
Quarter: 2012Q2

REPORT INFORMATION
  Report Type: 
  Country: None (occurrence: None)
  Receive Date: 20120409
  Receipt Date: 20120402
  Transmission Date: 20120825
  Serious: Yes (Other)
  Sender: FDA-Public Use
  Company Number: PHHY2012CN028196

PATIENT
  Age: 46 Year
  Sex: Female

DRUGS (3)
  1. METHYLPREDNISOLONE [Suspect]
     Dosage: 200 MG, UNK
     Route: 042
     Dates: end: 20080717
  2. METHYLPREDNISOLONE [Suspect]
     Dosage: 400 MG, UNK
     Route: 042
  3. PREDNISOLONE [Suspect]
     Dosage: 100 MG, UNK

REACTIONS (3)
  - DETACHMENT OF RETINAL PIGMENT EPITHELIUM [None]
  - RETINAL DETACHMENT [None]
  - VISUAL IMPAIRMENT [None]
